FAERS Safety Report 9920228 (Version 2)
Quarter: 2014Q1

REPORT INFORMATION
  Report Type: Spontaneous
  Country: US (occurrence: US)
  Receive Date: 20140224
  Receipt Date: 20140224
  Transmission Date: 20141002
  Serious: Yes (Other)
  Sender: FDA-Public Use
  Company Number: CHPA2014US002723

PATIENT
  Age: 74 Year
  Sex: Female

DRUGS (5)
  1. EXCEDRIN EXTRA STRENGTH [Suspect]
     Indication: JOINT STIFFNESS
     Dosage: 1 DF, BID
     Route: 048
     Dates: end: 2012
  2. EXCEDRIN EXTRA STRENGTH [Suspect]
     Indication: OFF LABEL USE
     Dosage: 1 DF, BID
     Route: 048
     Dates: start: 20140211, end: 20140213
  3. EXCEDRIN EXTRA STRENGTH [Suspect]
     Indication: INAPPROPRIATE SCHEDULE OF DRUG ADMINISTRATION
     Dosage: 1 DF, BID
     Dates: start: 20140211, end: 20140213
  4. EXCEDRIN EXTRA STRENGTH [Suspect]
     Indication: OFF LABEL USE
  5. PROTONIX [Concomitant]
     Indication: GASTROOESOPHAGEAL REFLUX DISEASE
     Dosage: UNK, BEFORE BREAKFAST

REACTIONS (3)
  - Femur fracture [Unknown]
  - Abdominal pain upper [Recovered/Resolved]
  - Nausea [Recovered/Resolved]
